FAERS Safety Report 20788379 (Version 2)
Quarter: 2022Q2

REPORT INFORMATION
  Report Type: Spontaneous
  Country: FI (occurrence: FI)
  Receive Date: 20220505
  Receipt Date: 20220511
  Transmission Date: 20220721
  Serious: Yes (Other)
  Sender: FDA-Public Use
  Company Number: FI-NOVARTISPH-NVSC2022FI100473

PATIENT
  Age: 67 Year
  Sex: Female

DRUGS (5)
  1. HYDROCHLOROTHIAZIDE\VALSARTAN [Suspect]
     Active Substance: HYDROCHLOROTHIAZIDE\VALSARTAN
     Indication: Hypertension
     Dosage: 160/12.5 MG, QD
     Route: 048
     Dates: start: 2007, end: 202204
  2. HYDROCHLOROTHIAZIDE\VALSARTAN [Suspect]
     Active Substance: HYDROCHLOROTHIAZIDE\VALSARTAN
     Dosage: 80/12.5 MG, QD
     Route: 048
     Dates: start: 20220427, end: 20220501
  3. BISOPROLOL FUMARATE [Concomitant]
     Active Substance: BISOPROLOL FUMARATE
     Indication: Blood pressure measurement
     Dosage: 5 MG, QD
     Route: 065
     Dates: start: 2007, end: 20220426
  4. BISOPROLOL FUMARATE [Concomitant]
     Active Substance: BISOPROLOL FUMARATE
     Dosage: 0.5 * 5 MG, BID
     Route: 048
     Dates: end: 20220427
  5. AMLODIPINE BESYLATE [Concomitant]
     Active Substance: AMLODIPINE BESYLATE
     Indication: Blood pressure measurement
     Dosage: (0.5-1 OR EVERY OTHER DAY), QOD
     Route: 065
     Dates: start: 2007

REACTIONS (14)
  - Macular degeneration [Unknown]
  - Blindness [Unknown]
  - Cataract [Unknown]
  - SARS-CoV-2 test positive [Recovered/Resolved]
  - Blood pressure increased [Unknown]
  - Eye pain [Recovered/Resolved]
  - Dry eye [Unknown]
  - Peripheral coldness [Unknown]
  - Nasopharyngitis [Recovered/Resolved]
  - Vision blurred [Unknown]
  - Blood glucose increased [Unknown]
  - Headache [Recovered/Resolved]
  - Fatigue [Recovered/Resolved]
  - Sneezing [Recovered/Resolved]

NARRATIVE: CASE EVENT DATE: 20211201
